FAERS Safety Report 5518906-9 (Version None)
Quarter: 2007Q4

REPORT INFORMATION
  Report Type: 
  Country: None (occurrence: None)
  Receive Date: 20071114
  Receipt Date: 20071030
  Transmission Date: 20080405
  Serious: Yes (Other)
  Sender: FDA-Public Use
  Company Number: 2007EN000271

PATIENT
  Age: 40 Year
  Sex: Female

DRUGS (1)
  1. OPANA ER [Suspect]
     Indication: PAIN
     Dosage: 10 MG X1
     Dates: start: 20070817, end: 20070817

REACTIONS (2)
  - DYSPNOEA [None]
  - SWELLING FACE [None]
